FAERS Safety Report 8522065 (Version 2)
Quarter: 2012Q4

REPORT INFORMATION
  Report Type: 
  Country: BR (occurrence: BR)
  Receive Date: 20120419
  Receipt Date: 20121026
  Transmission Date: 20130627
  Serious: Yes (Other)
  Sender: FDA-Public Use
  Company Number: BR-ASTRAZENECA-2012SE23999

PATIENT
  Age: 52 Year
  Sex: Female
  Weight: 81 kg

DRUGS (11)
  1. BUDESONIDE [Suspect]
     Indication: RHINITIS
     Route: 045
     Dates: start: 2008
  2. BUDESONIDE [Suspect]
     Indication: HYPERSENSITIVITY
     Route: 045
     Dates: start: 2008
  3. SYMBICORT TURBUHALER [Suspect]
     Indication: BRONCHITIS
     Dosage: 160/4.5 MCG TWO TIMES A DAY
     Route: 055
     Dates: start: 2008
  4. SYMBICORT TURBUHALER [Suspect]
     Indication: BRONCHITIS
     Dosage: 160/4.5 MCG ONCE DAILY
     Route: 055
  5. CRESTOR [Suspect]
     Indication: BLOOD TRIGLYCERIDES INCREASED
     Dosage: HALF TABLET DAILY
     Route: 048
     Dates: start: 200709, end: 201208
  6. CRESTOR [Suspect]
     Indication: BLOOD TRIGLYCERIDES INCREASED
     Dosage: EVERY 2 DAYS
     Route: 048
     Dates: start: 201208, end: 2012
  7. CRESTOR [Suspect]
     Indication: BLOOD TRIGLYCERIDES INCREASED
     Dosage: HALF TABLET DAILY
     Route: 048
     Dates: start: 2012
  8. CORTICOIDS [Suspect]
     Route: 065
  9. ANTIBIOTICS [Suspect]
     Route: 065
  10. FLUOXETINE [Concomitant]
     Route: 048
     Dates: start: 2003
  11. RIVOTRIL [Concomitant]
     Route: 048
     Dates: start: 2003

REACTIONS (20)
  - Influenza [Recovered/Resolved]
  - Ear infection [Recovering/Resolving]
  - Hypersensitivity [Recovered/Resolved]
  - Rhinitis [Recovering/Resolving]
  - Bronchitis [Recovering/Resolving]
  - Dyspnoea [Recovered/Resolved]
  - Chest pain [Recovered/Resolved]
  - Immunodeficiency [Unknown]
  - Asthma [Not Recovered/Not Resolved]
  - Sinusitis [Not Recovered/Not Resolved]
  - Pneumonia [Recovered/Resolved]
  - Pain in extremity [Recovered/Resolved]
  - Oedema peripheral [Recovered/Resolved]
  - Spinal disorder [Unknown]
  - Eye irritation [Not Recovered/Not Resolved]
  - Throat irritation [Not Recovered/Not Resolved]
  - Ear discomfort [Not Recovered/Not Resolved]
  - Fatigue [Unknown]
  - Intentional drug misuse [Not Recovered/Not Resolved]
  - Intentional drug misuse [Recovered/Resolved]
